FAERS Safety Report 7575587-0 (Version None)
Quarter: 2011Q2

REPORT INFORMATION
  Report Type: 
  Country: None (occurrence: None)
  Receive Date: 20110627
  Receipt Date: 20110616
  Transmission Date: 20111010
  Serious: Yes (Disabling)
  Sender: FDA-Public Use
  Company Number: PHHY2011GB53082

PATIENT
  Age: 70 Year
  Sex: Female

DRUGS (1)
  1. CEFUROXIME [Suspect]
     Dosage: 1 ML, UNK
     Route: 057

REACTIONS (9)
  - MACULAR ISCHAEMIA [None]
  - RETINAL VASCULAR DISORDER [None]
  - RETINAL HAEMORRHAGE [None]
  - INCORRECT DOSE ADMINISTERED [None]
  - CYSTOID MACULAR OEDEMA [None]
  - MACULAR SCAR [None]
  - RETINAL OEDEMA [None]
  - INTRAOCULAR PRESSURE INCREASED [None]
  - INCORRECT ROUTE OF DRUG ADMINISTRATION [None]
